FAERS Safety Report 23535189 (Version 2)
Quarter: 2024Q2

REPORT INFORMATION
  Report Type: Report from Study
  Country: US (occurrence: US)
  Receive Date: 20240218
  Receipt Date: 20240417
  Transmission Date: 20240716
  Serious: Yes (Other)
  Sender: FDA-Public Use
  Company Number: US-002147023-NVSC2024US032592

PATIENT
  Sex: Female

DRUGS (2)
  1. KESIMPTA [Suspect]
     Active Substance: OFATUMUMAB
     Indication: Product used for unknown indication
     Dosage: 20 MG
     Route: 065
  2. KESIMPTA [Suspect]
     Active Substance: OFATUMUMAB
     Dosage: UNK (SECOND LOADING DOSE ON 12 FEB)
     Route: 065

REACTIONS (5)
  - Syncope [Unknown]
  - Dizziness [Unknown]
  - Lethargy [Unknown]
  - Headache [Unknown]
  - Blood glucose decreased [Unknown]
